FAERS Safety Report 11089498 (Version 2)
Quarter: 2015Q2

REPORT INFORMATION
  Report Type: Spontaneous
  Country: IT (occurrence: IT)
  Receive Date: 20150505
  Receipt Date: 20150511
  Transmission Date: 20150821
  Serious: Yes (Hospitalization)
  Sender: FDA-Public Use
  Company Number: IT-ROCHE-1572713

PATIENT
  Age: 43 Year
  Sex: Female
  Weight: 61 kg

DRUGS (7)
  1. COPEGUS [Suspect]
     Active Substance: RIBAVIRIN
     Route: 048
     Dates: start: 20150416
  2. SOVALDI [Suspect]
     Active Substance: SOFOSBUVIR
     Indication: CHRONIC HEPATITIS C
     Dosage: 400 MG - FILM-COATED TABLET
     Route: 048
     Dates: start: 20150318
  3. ALDACTONE (ITALY) [Concomitant]
     Indication: HEPATIC CIRRHOSIS
     Dosage: 100 MG COATED TABLETS 10 TABLETS
     Route: 048
  4. INDERAL [Concomitant]
     Active Substance: PROPRANOLOL HYDROCHLORIDE
     Indication: HEPATIC CIRRHOSIS
     Route: 048
  5. TIVANTINIB [Concomitant]
     Active Substance: TIVANTINIB
     Indication: ACUTE HIV INFECTION
     Dosage: 50 MG - FILM-COATED TABLET
     Route: 048
     Dates: start: 20150127
  6. KIVEXA [Concomitant]
     Active Substance: ABACAVIR SULFATE\LAMIVUDINE
     Indication: ACUTE HIV INFECTION
     Dosage: 30 X 300 + 600 MG TABLETS
     Route: 048
     Dates: start: 20120527
  7. COPEGUS [Suspect]
     Active Substance: RIBAVIRIN
     Indication: CHRONIC HEPATITIS C
     Dosage: 168 X 200 MG FILM-COATED TABLETS IN BOTTLE
     Route: 048
     Dates: start: 20150318

REACTIONS (3)
  - Asthenia [Recovering/Resolving]
  - Anaemia [Recovering/Resolving]
  - Hyperbilirubinaemia [Recovering/Resolving]

NARRATIVE: CASE EVENT DATE: 20150327
